FAERS Safety Report 9068772 (Version 1)
Quarter: 2013Q1

REPORT INFORMATION
  Report Type: Spontaneous
  Country: US (occurrence: None)
  Receive Date: 20130212
  Receipt Date: 20130212
  Transmission Date: 20140127
  Serious: Yes (Other)
  Sender: FDA-Public Use
  Company Number: None

PATIENT
  Sex: Female
  Weight: 48.99 kg

DRUGS (1)
  1. EXJADE 500MG + .125 MG NOVARTIS [Suspect]
     Dosage: 2250MG PO QB
     Route: 048
     Dates: start: 2009, end: 201301

REACTIONS (2)
  - Blood creatinine increased [None]
  - Liver function test abnormal [None]
